FAERS Safety Report 25794249 (Version 2)
Quarter: 2025Q4

REPORT INFORMATION
  Report Type: Spontaneous
  Country: AR (occurrence: AR)
  Receive Date: 20250912
  Receipt Date: 20251006
  Transmission Date: 20260118
  Serious: Yes (Other)
  Sender: ROCHE
  Company Number: AR-002147023-NVSC2025AR139623

PATIENT
  Age: 75 Year
  Sex: Female

DRUGS (10)
  1. XOLAIR [Suspect]
     Active Substance: OMALIZUMAB
     Indication: Asthma
     Dosage: 300 MILLIGRAM PER MILLILITRE (4 WEEKS)
     Route: 058
     Dates: start: 202307
  2. XOLAIR [Suspect]
     Active Substance: OMALIZUMAB
     Dosage: 150 MILLIGRAM PER MILLILITRE (4 WEEKS)
     Route: 058
     Dates: start: 202503, end: 202507
  3. Gliosartan [Concomitant]
     Indication: Product used for unknown indication
     Dosage: 40 MG
     Route: 065
  4. LEVOTHYROXINE [Concomitant]
     Active Substance: LEVOTHYROXINE
     Indication: Product used for unknown indication
     Dosage: 175 MCG
     Route: 065
  5. Ilduc [Concomitant]
     Indication: Product used for unknown indication
     Dosage: 10 MG
     Route: 065
  6. SPIRONOLACTONE [Concomitant]
     Active Substance: SPIRONOLACTONE
     Indication: Product used for unknown indication
     Dosage: UNK, 25/20 MG
     Route: 065
  7. Nebix [Concomitant]
     Indication: Product used for unknown indication
     Dosage: 10 MG
     Route: 065
  8. METFORMIN [Concomitant]
     Active Substance: METFORMIN HYDROCHLORIDE
     Indication: Product used for unknown indication
     Dosage: 1 G
     Route: 065
  9. ERYTHROPOIETIN [Concomitant]
     Active Substance: ERYTHROPOIETIN
     Indication: Product used for unknown indication
     Dosage: 4000 IU, TIW
     Route: 065
  10. BUDESONIDE\FORMOTEROL [Concomitant]
     Active Substance: BUDESONIDE\FORMOTEROL
     Indication: Product used for unknown indication
     Dosage: UNK, BID
     Route: 065

REACTIONS (4)
  - Mitral valve incompetence [Recovering/Resolving]
  - Pain [Recovering/Resolving]
  - Product dispensing error [Unknown]
  - Catheter site pain [Recovered/Resolved]

NARRATIVE: CASE EVENT DATE: 20240701
